FAERS Safety Report 16753477 (Version 1)
Quarter: 2019Q3

REPORT INFORMATION
  Report Type: Spontaneous
  Country: US (occurrence: US)
  Receive Date: 20190829
  Receipt Date: 20190829
  Transmission Date: 20191005
  Serious: No
  Sender: FDA-Public Use
  Company Number: US-GLAXOSMITHKLINE-US2019153181

PATIENT
  Sex: Female

DRUGS (2)
  1. FLOVENT [Suspect]
     Active Substance: FLUTICASONE PROPIONATE
     Dosage: 2 PUFF(S), BID
     Route: 065
     Dates: end: 20190815
  2. FLOVENT [Suspect]
     Active Substance: FLUTICASONE PROPIONATE
     Indication: PRODUCT USED FOR UNKNOWN INDICATION
     Dosage: 1 PUFF(S), BID
     Route: 065
     Dates: start: 2019

REACTIONS (6)
  - Mood altered [Unknown]
  - Insomnia [Unknown]
  - Myalgia [Unknown]
  - Anger [Unknown]
  - Impulse-control disorder [Unknown]
  - Feeling jittery [Unknown]

NARRATIVE: CASE EVENT DATE: 2019
